FAERS Safety Report 5448116-5 (Version None)
Quarter: 2007Q3

REPORT INFORMATION
  Report Type: 
  Country: None (occurrence: None)
  Receive Date: 20070803
  Receipt Date: 20070712
  Transmission Date: 20080115
  Serious: No
  Sender: FDA-Public Use
  Company Number: 200711903BWH

PATIENT
  Age: 68 Year
  Sex: Male

DRUGS (7)
  1. NEXAVAR [Suspect]
     Indication: RENAL CELL CARCINOMA STAGE UNSPECIFIED
     Dosage: 200 MG,BID,ORAL; 400 MG,BID,ORAL
     Route: 048
     Dates: start: 20070530, end: 20070614
  2. NEXAVAR [Suspect]
     Indication: RENAL CELL CARCINOMA STAGE UNSPECIFIED
     Dosage: 200 MG,BID,ORAL; 400 MG,BID,ORAL
     Route: 048
     Dates: start: 20070615, end: 20070617
  3. NEXAVAR [Suspect]
     Indication: RENAL CELL CARCINOMA STAGE UNSPECIFIED
     Dosage: 200 MG,BID,ORAL; 400 MG,BID,ORAL
     Route: 048
     Dates: start: 20070525, end: 20070705
  4. LAMICTAL [Concomitant]
  5. CLARITIN [Concomitant]
  6. CELEBREX [Concomitant]
  7. PAXIL [Concomitant]

REACTIONS (4)
  - FATIGUE [None]
  - RASH [None]
  - RASH GENERALISED [None]
  - SKIN LESION [None]
